FAERS Safety Report 10532650 (Version 6)
Quarter: 2015Q1

REPORT INFORMATION
  Report Type: Spontaneous
  Country: US (occurrence: US)
  Receive Date: 20141021
  Receipt Date: 20150331
  Transmission Date: 20150720
  Serious: Yes (Hospitalization, Other)
  Sender: FDA-Public Use
  Company Number: US-009507513-1410USA008288

PATIENT
  Sex: Female

DRUGS (4)
  1. VITAMINS (UNSPECIFIED) [Concomitant]
     Active Substance: VITAMINS
     Dosage: UNK, QD
     Dates: start: 1983
  2. FOSAMAX [Suspect]
     Active Substance: ALENDRONATE SODIUM
     Indication: OSTEOPOROSIS
     Dosage: 70 MG, QW
     Route: 048
     Dates: start: 20040824, end: 20071112
  3. ASPIRIN. [Concomitant]
     Active Substance: ASPIRIN
     Dosage: 81 MG, QD
     Dates: start: 1983
  4. FOSAMAX PLUS D [Suspect]
     Active Substance: ALENDRONATE SODIUM\CHOLECALCIFEROL
     Indication: OSTEOPOROSIS
     Dosage: 70-2800 MG, QW
     Route: 048
     Dates: start: 20080614, end: 20120630

REACTIONS (9)
  - Haemorrhagic anaemia [Unknown]
  - Hypertension [Unknown]
  - Bone disorder [Unknown]
  - Intramedullary rod insertion [Unknown]
  - Glucose tolerance impaired [Unknown]
  - Blood cholesterol increased [Unknown]
  - Femur fracture [Unknown]
  - Osteopenia [Unknown]
  - Osteopetrosis [Unknown]

NARRATIVE: CASE EVENT DATE: 20040824
